FAERS Safety Report 7815727-9 (Version None)
Quarter: 2011Q4

REPORT INFORMATION
  Report Type: 
  Country: None (occurrence: None)
  Receive Date: 20111014
  Receipt Date: 20111012
  Transmission Date: 20120403
  Serious: Yes (Other)
  Sender: FDA-Public Use
  Company Number: NL-PURDUE-GBR-2011-0008907

PATIENT
  Sex: Female
  Weight: 57 kg

DRUGS (10)
  1. NEXIUM [Concomitant]
     Dosage: 40 MG, DAILY
     Dates: start: 20110127
  2. CALCIUM CARBONATE [Concomitant]
     Dosage: 500 MG, DAILY
     Dates: start: 20110301
  3. OXYCONTIN [Suspect]
     Indication: PAIN
     Dosage: 10 MG, BID
     Route: 048
     Dates: start: 20110127
  4. CITALOPRAM HYDROBROMIDE [Suspect]
     Indication: DEPRESSION
     Dosage: 30 MG, DAILY
     Route: 048
     Dates: start: 20110822, end: 20110914
  5. CARBAMAZEPINE KATWIJK [Concomitant]
     Dosage: 50 MG, BID
     Dates: start: 20110905
  6. COVERSYL ARGININE [Concomitant]
     Dosage: 5 MG, DAILY
     Dates: start: 20110127
  7. COLECALCIFEROL [Concomitant]
     Dosage: 50000 IU, PER 8 WEEKS
     Dates: start: 20110301
  8. CITALOPRAM HYDROBROMIDE [Suspect]
     Dosage: 20 MG, DAILY
     Route: 048
     Dates: start: 20110321, end: 20110821
  9. ALENDRONINEZUUR CF [Concomitant]
     Indication: PRODUCT USED FOR UNKNOWN INDICATION
     Dosage: 70 MG, WEEKLY
     Dates: start: 20110127
  10. FUROSEMIDE                         /00032602/ [Concomitant]
     Indication: PRODUCT USED FOR UNKNOWN INDICATION
     Dosage: 40 MG, DAILY
     Dates: start: 20110127

REACTIONS (1)
  - SEROTONIN SYNDROME [None]
